FAERS Safety Report 7768187-0 (Version None)
Quarter: 2011Q3

REPORT INFORMATION
  Report Type: 
  Country: None (occurrence: None)
  Receive Date: 20110922
  Receipt Date: 20110922
  Transmission Date: 20111222
  Serious: Yes (Hospitalization)
  Sender: FDA-Public Use
  Company Number: None

PATIENT
  Sex: Male
  Weight: 61 kg

DRUGS (4)
  1. VANCOMYCIN [Suspect]
     Indication: STAPHYLOCOCCAL BACTERAEMIA
     Dosage: 1000MG
     Route: 042
     Dates: start: 20110730, end: 20110801
  2. SPIRONONLACTONE [Concomitant]
     Route: 048
  3. LISINOPRIL [Concomitant]
     Route: 048
  4. IBUPROFEN [Concomitant]
     Route: 048

REACTIONS (4)
  - MENTAL STATUS CHANGES [None]
  - DRUG LEVEL INCREASED [None]
  - NEPHROPATHY TOXIC [None]
  - BLOOD CREATININE INCREASED [None]
